FAERS Safety Report 11495040 (Version 1)
Quarter: 2015Q3

REPORT INFORMATION
  Report Type: Spontaneous
  Country: US (occurrence: US)
  Receive Date: 20150911
  Receipt Date: 20150911
  Transmission Date: 20151125
  Serious: Yes (Other)
  Sender: FDA-Public Use
  Company Number: US-ROCHE-751199

PATIENT
  Age: 48 Year
  Sex: Male

DRUGS (2)
  1. PEGASYS [Suspect]
     Active Substance: PEGINTERFERON ALFA-2A
     Indication: HEPATITIS C
     Route: 058
     Dates: start: 20101217, end: 20110603
  2. RIBAVIRIN. [Suspect]
     Active Substance: RIBAVIRIN
     Indication: HEPATITIS C
     Dosage: FREQUENCY: 1200 MG IN DIVIDED DOSES DAILY FPR PLANNED 24 WEEKS COURSE.
     Route: 048
     Dates: start: 20101217, end: 20110603

REACTIONS (15)
  - Dry skin [Not Recovered/Not Resolved]
  - Fatigue [Unknown]
  - Nausea [Unknown]
  - Pruritus [Unknown]
  - Influenza like illness [Recovered/Resolved]
  - Mania [Unknown]
  - Platelet count decreased [Not Recovered/Not Resolved]
  - Hepatic cirrhosis [Unknown]
  - Diabetes mellitus inadequate control [Not Recovered/Not Resolved]
  - Injection site haematoma [Recovering/Resolving]
  - Full blood count abnormal [Unknown]
  - Blood blister [Not Recovered/Not Resolved]
  - Hepatitis C [Unknown]
  - Visual impairment [Not Recovered/Not Resolved]
  - Aggression [Unknown]

NARRATIVE: CASE EVENT DATE: 20101217
